FAERS Safety Report 7558442-1 (Version None)
Quarter: 2011Q2

REPORT INFORMATION
  Report Type: 
  Country: None (occurrence: None)
  Receive Date: 20110620
  Receipt Date: 20110610
  Transmission Date: 20111010
  Serious: Yes (Hospitalization, Other)
  Sender: FDA-Public Use
  Company Number: US-ASTRAZENECA-2011SE34176

PATIENT
  Age: 75 Year
  Sex: Female

DRUGS (1)
  1. PULMICORT FLEXHALER [Suspect]
     Dosage: 180 MCG, 2 PUFFS DAILY
     Route: 055

REACTIONS (5)
  - KNEE ARTHROPLASTY [None]
  - ASTHMA [None]
  - OXYGEN SUPPLEMENTATION [None]
  - PRECANCEROUS CELLS PRESENT [None]
  - BENIGN BREAST LUMP REMOVAL [None]
